FAERS Safety Report 15648719 (Version 1)
Quarter: 2018Q4

REPORT INFORMATION
  Report Type: Spontaneous
  Country: CN (occurrence: CN)
  Receive Date: 20181122
  Receipt Date: 20181122
  Transmission Date: 20190205
  Serious: Yes (Hospitalization)
  Sender: FDA-Public Use
  Company Number: CN-ELI_LILLY_AND_COMPANY-CN201811009067

PATIENT
  Age: 16 Year
  Weight: 37.5 kg

DRUGS (2)
  1. HUMALOG [Suspect]
     Active Substance: INSULIN LISPRO
     Dosage: 9 U, BID (NOON)
     Route: 058
     Dates: start: 201708
  2. HUMALOG [Suspect]
     Active Substance: INSULIN LISPRO
     Indication: DIABETES MELLITUS
     Dosage: 10 U, BID (MORNING AND NIGHT)
     Route: 058
     Dates: start: 201708

REACTIONS (1)
  - Blood glucose abnormal [Unknown]
